FAERS Safety Report 13512356 (Version 1)
Quarter: 2017Q2

REPORT INFORMATION
  Report Type: Spontaneous
  Country: US (occurrence: US)
  Receive Date: 20170504
  Receipt Date: 20170504
  Transmission Date: 20170830
  Serious: No
  Sender: FDA-Public Use
  Company Number: US-ALLERGAN-2016-001822

PATIENT
  Age: 69 Year
  Sex: Female
  Weight: 76 kg

DRUGS (22)
  1. COENZYME Q10 [Concomitant]
     Active Substance: UBIDECARENONE
     Dosage: 100 MG, UNKNOWN
     Route: 048
  2. GABAPENTIN. [Concomitant]
     Active Substance: GABAPENTIN
     Dosage: 100 MG, UNKNOWN
     Route: 065
  3. NITROFURANTOIN. [Concomitant]
     Active Substance: NITROFURANTOIN
     Dosage: UNK UNK, UNKNOWN
     Route: 065
  4. OMEPRAZOLE. [Concomitant]
     Active Substance: OMEPRAZOLE
     Dosage: UNK UNK, UNKNOWN
     Route: 065
  5. SIMVASTATIN. [Concomitant]
     Active Substance: SIMVASTATIN
     Dosage: 10 MG, UNKNOWN
     Route: 065
  6. AMLODIPINE [Concomitant]
     Active Substance: AMLODIPINE BESYLATE
     Dosage: 5 MG, UNKNOWN
     Route: 048
  7. METFORMIN [Concomitant]
     Active Substance: METFORMIN HYDROCHLORIDE
     Dosage: 500 MG, UNKNOWN
     Route: 065
  8. OXYBUTYNIN HYDROCHLORIDE [Concomitant]
     Active Substance: OXYBUTYNIN CHLORIDE
     Dosage: 10 MG, UNKNOWN
     Route: 065
  9. TRIAMTERENE. [Concomitant]
     Active Substance: TRIAMTERENE
     Dosage: 3.75 MG, UNKNOWN
     Route: 065
  10. IBUPROFEN. [Concomitant]
     Active Substance: IBUPROFEN
     Dosage: UNK UNK, UNKNOWN
     Route: 065
  11. GLUCOSAMINE HYDROCHLORIDE [Concomitant]
     Active Substance: GLUCOSAMINE HYDROCHLORIDE
     Dosage: 1500 UNK, UNKNOWN
     Route: 065
  12. FEMRING [Suspect]
     Active Substance: ESTRADIOL ACETATE
     Indication: BLADDER DISORDER
     Dosage: UNK UNK, UNKNOWN
     Route: 065
     Dates: start: 20160808, end: 20160810
  13. CENTRUM SILVER                     /01292501/ [Concomitant]
     Active Substance: MINERALS\VITAMINS
     Dosage: UNK UNK, UNKNOWN
     Route: 048
  14. ENALAPRIL MALEATE. [Concomitant]
     Active Substance: ENALAPRIL MALEATE
     Dosage: 2.5 MG, UNKNOWN
     Route: 048
  15. FLUOXETINE [Concomitant]
     Active Substance: FLUOXETINE HYDROCHLORIDE
     Dosage: 10 MG, UNKNOWN
  16. FLUTICASONE. [Concomitant]
     Active Substance: FLUTICASONE
     Dosage: UNK, PRN
     Route: 065
  17. LORATADINE. [Concomitant]
     Active Substance: LORATADINE
     Indication: SEASONAL ALLERGY
     Dosage: 10 MG, UNKNOWN
     Route: 065
  18. MONTELUKAST [Concomitant]
     Active Substance: MONTELUKAST SODIUM
     Indication: ASTHMA
     Dosage: UNK UNK, UNKNOWN
     Route: 065
  19. FEMRING [Suspect]
     Active Substance: ESTRADIOL ACETATE
     Indication: RECTOCELE
  20. EPIPEN [Concomitant]
     Active Substance: EPINEPHRINE
     Dosage: UNK
  21. LEVOFLOXACIN. [Concomitant]
     Active Substance: LEVOFLOXACIN
     Dosage: UNK UNK, UNKNOWN
     Route: 065
  22. OTHER OPHTHALMOLOGICALS [Concomitant]

REACTIONS (4)
  - Vaginal haemorrhage [Not Recovered/Not Resolved]
  - Device expulsion [Unknown]
  - Drug dose omission [Unknown]
  - Product use in unapproved indication [Unknown]

NARRATIVE: CASE EVENT DATE: 20160808
